FAERS Safety Report 24170941 (Version 2)
Quarter: 2024Q3

REPORT INFORMATION
  Report Type: Spontaneous
  Country: US (occurrence: US)
  Receive Date: 20240805
  Receipt Date: 20240812
  Transmission Date: 20241016
  Serious: No
  Sender: BIOGEN
  Company Number: US-BIOGEN-2024BI01276113

PATIENT
  Sex: Female

DRUGS (2)
  1. TECFIDERA [Suspect]
     Active Substance: DIMETHYL FUMARATE
     Indication: Multiple sclerosis
     Dosage: STOP DATE ALSO REPORTED AS 30-JUL-2018
     Route: 050
     Dates: start: 20171026, end: 20181231
  2. TECFIDERA [Suspect]
     Active Substance: DIMETHYL FUMARATE
     Route: 050
     Dates: start: 20190812

REACTIONS (4)
  - Immune system disorder [Unknown]
  - Insomnia [Unknown]
  - Depression [Unknown]
  - Eating disorder [Unknown]
